FAERS Safety Report 18723059 (Version 3)
Quarter: 2021Q1

REPORT INFORMATION
  Report Type: Spontaneous
  Country: JP (occurrence: JP)
  Receive Date: 20210111
  Receipt Date: 20210326
  Transmission Date: 20210419
  Serious: Yes (Death, Other)
  Sender: FDA-Public Use
  Company Number: JP-JAZZ-2021-JP-000133

PATIENT
  Age: 52 Year
  Sex: Male

DRUGS (1)
  1. DEFITELIO [Suspect]
     Active Substance: DEFIBROTIDE SODIUM
     Indication: VENOOCCLUSIVE LIVER DISEASE
     Dosage: 18 MILLIGRAM/KILOGRAM/24 HOURS
     Route: 042
     Dates: start: 20201220, end: 20201223

REACTIONS (2)
  - Off label use [Unknown]
  - Respiratory failure [Unknown]

NARRATIVE: CASE EVENT DATE: 20201220
